FAERS Safety Report 24819431 (Version 3)
Quarter: 2025Q2

REPORT INFORMATION
  Report Type: Spontaneous
  Country: PT (occurrence: PT)
  Receive Date: 20250108
  Receipt Date: 20250428
  Transmission Date: 20250717
  Serious: Yes (Hospitalization)
  Sender: BAYER HEALTHCARE PHARMACEUTICALS INC.
  Company Number: None

PATIENT
  Age: 52 Year
  Sex: Male
  Weight: 86 kg

DRUGS (7)
  1. CIPROFLOXACIN [Suspect]
     Active Substance: CIPROFLOXACIN
     Indication: Cholecystectomy
     Dosage: 500 MG, BID
     Route: 048
     Dates: start: 20241118, end: 20241123
  2. CIPROFLOXACIN [Suspect]
     Active Substance: CIPROFLOXACIN
     Indication: Cholecystectomy
     Dosage: 400 MG, BID
     Route: 042
     Dates: start: 20241114, end: 20241118
  3. UNSPECIFIED INGREDIENT [Suspect]
     Active Substance: UNSPECIFIED INGREDIENT
     Indication: Cholecystectomy
     Dosage: 400MG, BID
     Route: 042
     Dates: start: 20241114, end: 20241118
  4. Nolotil [Concomitant]
     Dosage: 2000 MG, BID
     Route: 042
  5. METOCLOPRAMIDE HYDROCHLORIDE [Concomitant]
     Active Substance: METOCLOPRAMIDE HYDROCHLORIDE
     Dosage: 10 MG, Q8HR
     Route: 042
  6. ACETAMINOPHEN [Concomitant]
     Active Substance: ACETAMINOPHEN
     Dosage: 1000 MG, QID
     Route: 042
  7. METAMIZOLE [Concomitant]
     Active Substance: METAMIZOLE
     Dosage: 2000 MG, BID
     Route: 042

REACTIONS (3)
  - Lipase increased [Recovered/Resolved]
  - Transaminases increased [Recovered/Resolved]
  - Amylase increased [Recovered/Resolved]

NARRATIVE: CASE EVENT DATE: 20241115
